FAERS Safety Report 8455973-7 (Version None)
Quarter: 2012Q2

REPORT INFORMATION
  Report Type: 
  Country: None (occurrence: None)
  Receive Date: 20120621
  Receipt Date: 20120614
  Transmission Date: 20120825
  Serious: Yes (Hospitalization)
  Sender: FDA-Public Use
  Company Number: GB-ROCHE-1051457

PATIENT
  Sex: Male

DRUGS (6)
  1. METHOTREXATE [Concomitant]
     Route: 058
  2. LANSOPRAZOLE [Concomitant]
  3. MABTHERA [Suspect]
     Indication: RHEUMATOID ARTHRITIS
     Dosage: LAST DOSE PRIOR TO SAE: 15/AUG/2011
     Dates: start: 20110501
  4. FOLIC ACID [Concomitant]
  5. HYDROXYCHLOROQUINE SULFATE [Concomitant]
  6. ACETAMINOPHEN [Concomitant]

REACTIONS (2)
  - NEUTROPENIC SEPSIS [None]
  - NEUTROPENIA [None]
